FAERS Safety Report 6994175-8 (Version None)
Quarter: 2010Q3

REPORT INFORMATION
  Report Type: 
  Country: None (occurrence: None)
  Receive Date: 20100917
  Receipt Date: 20100311
  Transmission Date: 20110219
  Serious: Yes (Other)
  Sender: FDA-Public Use
  Company Number: US-ASTRAZENECA-2009UW20829

PATIENT
  Sex: Male

DRUGS (6)
  1. SEROQUEL [Suspect]
     Dosage: 100 MG TWO AT BED TIME
     Route: 048
     Dates: start: 20071209
  2. DEPAKENE [Concomitant]
     Dosage: 250 MG TWO TABLETS THRICE A DAY
     Dates: start: 20071209
  3. KLONOPIN [Concomitant]
     Dates: start: 20071209
  4. ZOLOFT [Concomitant]
     Dates: start: 20071209
  5. CLONIDINE [Concomitant]
     Dates: start: 20071209
  6. LISINOPRIL [Concomitant]
     Dosage: 10/30 DAILY
     Dates: start: 20071209

REACTIONS (3)
  - DIABETES MELLITUS [None]
  - KETOACIDOSIS [None]
  - PANCREATITIS [None]
